FAERS Safety Report 5053925-0 (Version None)
Quarter: 2006Q3

REPORT INFORMATION
  Report Type: 
  Country: None (occurrence: None)
  Receive Date: 20060718
  Receipt Date: 20060109
  Transmission Date: 20061208
  Serious: Yes (Other)
  Sender: FDA-Public Use
  Company Number: US-MERCK-0601USA00959

PATIENT
  Age: 54 Year
  Sex: Female

DRUGS (1)
  1. FOSAMAX [Suspect]
     Route: 048

REACTIONS (2)
  - GINGIVAL INFECTION [None]
  - POST PROCEDURAL COMPLICATION [None]
